FAERS Safety Report 4518668-8 (Version None)
Quarter: 2004Q4

REPORT INFORMATION
  Report Type: 
  Country: None (occurrence: None)
  Receive Date: 20041029
  Receipt Date: 20040917
  Transmission Date: 20050328
  Serious: No
  Sender: FDA-Public Use
  Company Number: 200417188US

PATIENT
  Age: 17 Year
  Sex: Male

DRUGS (1)
  1. KETEK [Suspect]
     Dosage: 800 MG QD; A FEW DAYS

REACTIONS (3)
  - HEPATIC ENZYME INCREASED [None]
  - NERVOUSNESS [None]
  - PALPITATIONS [None]
